FAERS Safety Report 16518097 (Version 2)
Quarter: 2020Q1

REPORT INFORMATION
  Report Type: Report from Study
  Country: US (occurrence: US)
  Receive Date: 20190702
  Receipt Date: 20200320
  Transmission Date: 20200409
  Serious: Yes (Hospitalization)
  Sender: FDA-Public Use
  Company Number: US-PFIZER INC-2019123677

PATIENT
  Age: 77 Year
  Sex: Male
  Weight: 70.3 kg

DRUGS (26)
  1. VITAMIN D [COLECALCIFEROL] [Concomitant]
     Active Substance: CHOLECALCIFEROL
     Indication: NUTRITIONAL SUPPLEMENTATION
     Dosage: 1000 IU, 1X/DAY
     Route: 048
     Dates: start: 20180214
  2. KENALOG [Concomitant]
     Active Substance: TRIAMCINOLONE ACETONIDE
     Indication: PSORIATIC ARTHROPATHY
     Dosage: 1 APPLICATION, AS NEEDED
     Route: 061
     Dates: start: 20181211
  3. ATENOLOL. [Concomitant]
     Active Substance: ATENOLOL
     Indication: HYPERTENSION
     Dosage: 25 MG, 1X/DAY
     Route: 048
     Dates: start: 201901, end: 20190306
  4. VITAMIN D [ERGOCALCIFEROL] [Concomitant]
     Active Substance: ERGOCALCIFEROL
     Indication: NUTRITIONAL SUPPLEMENTATION
     Dosage: 3000 IU, 1X/DAY
     Route: 048
     Dates: start: 201901, end: 20190306
  5. FIORICET [Concomitant]
     Active Substance: ACETAMINOPHEN\BUTALBITAL\CAFFEINE
     Indication: MIGRAINE
     Dosage: 2 TABLETS, AS NEEDED
     Route: 048
     Dates: start: 20190120
  6. TAFAMIDIS [Suspect]
     Active Substance: TAFAMIDIS MEGLUMINE
     Indication: CARDIAC AMYLOIDOSIS
     Dosage: 61 MG, 1X/DAY
     Route: 048
     Dates: start: 20181229
  7. TYLENOL [Concomitant]
     Active Substance: ACETAMINOPHEN
     Indication: ARTHRITIS
     Dosage: 650 MG, AS NEEDED
     Route: 048
     Dates: start: 20180214
  8. LIPITOR [Concomitant]
     Active Substance: ATORVASTATIN CALCIUM
     Indication: HYPERLIPIDAEMIA
     Dosage: 10 MG, 1X/DAY
     Route: 048
     Dates: start: 20181112
  9. HYDROCORTISONE ACETATE PRAMOXIN HCL [Concomitant]
     Indication: HAEMORRHOIDS
     Dosage: 1 APPLICATION AT BEDTIME (QHS)
     Route: 054
     Dates: start: 20190118
  10. XANAX [Concomitant]
     Active Substance: ALPRAZOLAM
     Indication: ANXIETY
     Dosage: 0.5 MG, AT BEDTIME (QHS)
     Route: 048
     Dates: start: 20190124
  11. LASIX [Concomitant]
     Active Substance: FUROSEMIDE
     Indication: OEDEMA PERIPHERAL
  12. FOLVITE [FOLIC ACID] [Concomitant]
     Indication: NUTRITIONAL SUPPLEMENTATION
     Dosage: 1 MG, 1X/DAY
     Route: 048
     Dates: start: 20150611
  13. MORPHINE [Concomitant]
     Active Substance: MORPHINE
     Dosage: 30 MG, 2X/DAY
     Route: 048
     Dates: start: 201901, end: 20190306
  14. MEDROL [Concomitant]
     Active Substance: METHYLPREDNISOLONE
     Indication: CARDIAC FAILURE CONGESTIVE
     Dosage: 4 MG, 1X/DAY
     Route: 048
     Dates: start: 20180330
  15. TOPROL XL [Concomitant]
     Active Substance: METOPROLOL SUCCINATE
     Indication: CARDIAC FAILURE CONGESTIVE
     Dosage: 25 MG, 1X/DAY
     Route: 048
     Dates: start: 20180712
  16. XANAX [Concomitant]
     Active Substance: ALPRAZOLAM
     Indication: INSOMNIA
  17. NEURONTIN [Suspect]
     Active Substance: GABAPENTIN
     Indication: PAIN IN EXTREMITY
     Dosage: 300 MG, 3X/DAY
     Route: 048
     Dates: start: 20190306, end: 20190308
  18. DONNATAL [Concomitant]
     Active Substance: ATROPINE SULFATE\HYOSCYAMINE SULFATE\PHENOBARBITAL\SCOPOLAMINE HYDROBROMIDE
     Indication: IRRITABLE BOWEL SYNDROME
     Dosage: 16.2 MG, 1X/DAY
     Route: 048
     Dates: start: 20180712
  19. ZOLOFT [Concomitant]
     Active Substance: SERTRALINE HYDROCHLORIDE
     Indication: DEPRESSION
     Dosage: 50 MG, 1X/DAY
     Route: 048
     Dates: start: 20181209
  20. LIDEX [Concomitant]
     Active Substance: FLUOCINONIDE
     Indication: PSORIATIC ARTHROPATHY
     Dosage: 1 APPLICATION, 2X/DAY
     Route: 061
     Dates: start: 20190120
  21. NEURONTIN [Suspect]
     Active Substance: GABAPENTIN
     Indication: PERIPHERAL SENSORY NEUROPATHY
     Dosage: 500 MG, 1X/DAY
     Route: 048
     Dates: start: 20190119, end: 20190305
  22. FLOMAX [Concomitant]
     Active Substance: TAMSULOSIN HYDROCHLORIDE
     Indication: BENIGN PROSTATIC HYPERPLASIA
     Dosage: 0.4 MG, 1X/DAY
     Route: 048
     Dates: start: 20150611
  23. LASIX [Concomitant]
     Active Substance: FUROSEMIDE
     Indication: CARDIAC FAILURE CONGESTIVE
     Dosage: 60 MG, 1X/DAY
     Route: 048
     Dates: start: 20180214, end: 20190306
  24. MORPHINE [Concomitant]
     Active Substance: MORPHINE
     Indication: PAIN IN EXTREMITY
     Dosage: 15 MG, AS NEEDED
     Route: 048
     Dates: start: 201901, end: 20190306
  25. NIZORAL [Concomitant]
     Active Substance: KETOCONAZOLE
     Indication: PSORIATIC ARTHROPATHY
     Dosage: 1 APPLICATION, 2X/DAY
     Route: 061
     Dates: start: 20181228
  26. PRILOSEC [Concomitant]
     Active Substance: OMEPRAZOLE MAGNESIUM
     Indication: GASTROOESOPHAGEAL REFLUX DISEASE
     Dosage: 40 MG, 2X/DAY
     Route: 048
     Dates: start: 20190121, end: 20190306

REACTIONS (2)
  - Myocardial infarction [Recovered/Resolved]
  - Fall [Recovered/Resolved]

NARRATIVE: CASE EVENT DATE: 20190307
